FAERS Safety Report 10922274 (Version 1)
Quarter: 2015Q1

REPORT INFORMATION
  Report Type: Spontaneous
  Country: CH (occurrence: CH)
  Receive Date: 20150317
  Receipt Date: 20150317
  Transmission Date: 20150721
  Serious: Yes (Hospitalization)
  Sender: FDA-Public Use
  Company Number: CH-PFIZER INC-2015089757

PATIENT
  Age: 87 Year
  Sex: Female
  Weight: 70 kg

DRUGS (7)
  1. FRAGMIN [Suspect]
     Active Substance: DALTEPARIN SODIUM
     Dosage: 7500 IU, SINGLE
     Route: 058
     Dates: start: 20140701, end: 20140701
  2. ARIXTRA [Interacting]
     Active Substance: FONDAPARINUX SODIUM
     Dosage: 7.5 MG, SINGLE
     Route: 058
     Dates: start: 20140630, end: 20140630
  3. CORDARONE [Interacting]
     Active Substance: AMIODARONE HYDROCHLORIDE
     Indication: ATRIAL FIBRILLATION
     Dosage: UNK
     Route: 048
     Dates: start: 20140701
  4. HAWTHORN [Concomitant]
     Indication: CARDIAC DISORDER
     Dosage: UNK
     Dates: start: 20140330
  5. TOREM [Concomitant]
     Active Substance: TORSEMIDE
     Dosage: 10 MG, 1X/DAY
     Route: 048
     Dates: start: 20140630
  6. XARELTO [Interacting]
     Active Substance: RIVAROXABAN
     Indication: ATRIAL FIBRILLATION
     Dosage: 20 MG, 1X/DAY
     Route: 048
     Dates: start: 20140702, end: 20140703
  7. BELOC ZOK [Concomitant]
     Active Substance: METOPROLOL SUCCINATE
     Dosage: 25 MG, 1X/DAY
     Route: 048
     Dates: start: 20140702

REACTIONS (4)
  - Abdominal wall haemorrhage [Recovered/Resolved]
  - Drug interaction [Unknown]
  - Blood fibrinogen decreased [Unknown]
  - Haemorrhagic anaemia [Recovering/Resolving]

NARRATIVE: CASE EVENT DATE: 2014
